FAERS Safety Report 9038655 (Version 1)
Quarter: 2013Q1

REPORT INFORMATION
  Report Type: Report from Study
  Country: US (occurrence: US)
  Receive Date: 20130129
  Receipt Date: 20130129
  Transmission Date: 20140127
  Serious: No
  Sender: FDA-Public Use
  Company Number: US-ABBOTT-12P-163-0935072-00

PATIENT
  Sex: Female
  Weight: 65.83 kg

DRUGS (5)
  1. HUMIRA 40 MG/0.8 ML PEN [Suspect]
     Indication: RHEUMATOID ARTHRITIS
     Dates: start: 2009
  2. ZOLOFT [Concomitant]
     Indication: DEPRESSION
  3. KLONOPIN [Concomitant]
     Indication: DEPRESSION
  4. FOSAMAX [Concomitant]
     Indication: OSTEOARTHRITIS
  5. UNKNOWN SUPPLEMENTS [Concomitant]
     Indication: SUPPLEMENTATION THERAPY

REACTIONS (5)
  - Synovial cyst [Recovered/Resolved]
  - Pain [Not Recovered/Not Resolved]
  - Rheumatoid arthritis [Recovered/Resolved]
  - Cyst [Recovered/Resolved]
  - Synovial cyst [Not Recovered/Not Resolved]
